FAERS Safety Report 14131142 (Version 3)
Quarter: 2018Q1

REPORT INFORMATION
  Report Type: Report from Study
  Country: US (occurrence: US)
  Receive Date: 20171026
  Receipt Date: 20180125
  Transmission Date: 20180508
  Serious: No
  Sender: FDA-Public Use
  Company Number: US-AMGEN-USASL2017112906

PATIENT
  Age: 73 Year
  Sex: Female

DRUGS (1)
  1. REPATHA [Suspect]
     Active Substance: EVOLOCUMAB
     Indication: HYPERLIPIDAEMIA
     Dosage: 140 MG, Q2WK
     Route: 065
     Dates: start: 20170715, end: 20170729

REACTIONS (5)
  - Drug hypersensitivity [Recovered/Resolved]
  - Arthralgia [Unknown]
  - Asthma [Recovered/Resolved]
  - Myalgia [Unknown]
  - Motion sickness [Unknown]

NARRATIVE: CASE EVENT DATE: 20170717
